FAERS Safety Report 15297237 (Version 12)
Quarter: 2022Q1

REPORT INFORMATION
  Report Type: Report from Study
  Country: US (occurrence: US)
  Receive Date: 20180820
  Receipt Date: 20220125
  Transmission Date: 20220423
  Serious: Yes (Other)
  Sender: FDA-Public Use
  Company Number: US-TAKEDA-2018TUS021546

PATIENT
  Sex: Female
  Weight: 44 kg

DRUGS (5)
  1. PONATINIB [Suspect]
     Active Substance: PONATINIB
     Indication: Chronic myeloid leukaemia
     Dosage: 15 MILLIGRAM, QD
     Route: 048
     Dates: start: 201405
  2. PONATINIB [Suspect]
     Active Substance: PONATINIB
     Indication: Chronic myeloid leukaemia
     Dosage: 30 MILLIGRAM, 1/WEEK
     Route: 048
  3. PONATINIB [Suspect]
     Active Substance: PONATINIB
     Dosage: 15 MILLIGRAM, 2/WEEK
     Route: 048
  4. PONATINIB [Suspect]
     Active Substance: PONATINIB
     Dosage: 15 MILLIGRAM, 1/WEEK
     Route: 048
  5. PONATINIB [Suspect]
     Active Substance: PONATINIB
     Dosage: UNK
     Route: 048

REACTIONS (14)
  - Surgery [Unknown]
  - Gastrointestinal haemorrhage [Unknown]
  - Memory impairment [Unknown]
  - Cardiac disorder [Unknown]
  - Hypoacusis [Unknown]
  - Heart rate increased [Unknown]
  - Hypoaesthesia [Unknown]
  - Fatigue [Unknown]
  - Poor quality sleep [Unknown]
  - Abdominal pain [Unknown]
  - White blood cell count decreased [Unknown]
  - Full blood count decreased [Recovering/Resolving]
  - Product dose omission issue [Unknown]
  - Off label use [Unknown]
